FAERS Safety Report 21538608 (Version 2)
Quarter: 2022Q4

REPORT INFORMATION
  Report Type: Spontaneous
  Country: JP (occurrence: JP)
  Receive Date: 20221102
  Receipt Date: 20221118
  Transmission Date: 20230113
  Serious: Yes (Other)
  Sender: FDA-Public Use
  Company Number: JP-VALIDUS PHARMACEUTICALS LLC-JP-VDP-2022-015797

PATIENT

DRUGS (4)
  1. FUROSEMIDE [Suspect]
     Active Substance: FUROSEMIDE
     Indication: Product used for unknown indication
     Dosage: 1 DF, QD AFTER BREAKFAST
     Route: 048
  2. PROCAINAMIDE HYDROCHLORIDE [Suspect]
     Active Substance: PROCAINAMIDE HYDROCHLORIDE
     Indication: Extrasystoles
     Dosage: UNK
     Route: 065
  3. LUBIPROSTONE [Concomitant]
     Active Substance: LUBIPROSTONE
     Indication: Product used for unknown indication
     Dosage: UNK
     Route: 065
  4. SENNOSIDES A AND B [Concomitant]
     Active Substance: SENNOSIDES A AND B
     Indication: Product used for unknown indication
     Dosage: UNK
     Route: 065

REACTIONS (3)
  - Electrocardiogram QT prolonged [Recovered/Resolved]
  - Torsade de pointes [Unknown]
  - Electrolyte imbalance [Recovered/Resolved]
